FAERS Safety Report 13157985 (Version 1)
Quarter: 2017Q1

REPORT INFORMATION
  Report Type: Spontaneous
  Country: US (occurrence: US)
  Receive Date: 20170124
  Receipt Date: 20170124
  Transmission Date: 20170428
  Serious: Yes (Hospitalization)
  Sender: FDA-Public Use
  Company Number: None

PATIENT
  Age: 47 Year
  Sex: Female
  Weight: 144 kg

DRUGS (8)
  1. METFORMIN [Suspect]
     Active Substance: METFORMIN HYDROCHLORIDE
     Indication: DIABETES MELLITUS
     Route: 048
  2. DEPO-PROVERA [Concomitant]
     Active Substance: MEDROXYPROGESTERONE ACETATE
  3. TRAZODONE [Concomitant]
     Active Substance: TRAZODONE HYDROCHLORIDE
  4. BACTRIM [Suspect]
     Active Substance: SULFAMETHOXAZOLE\TRIMETHOPRIM
     Indication: CELLULITIS
     Route: 048
  5. TIZANIDINE. [Concomitant]
     Active Substance: TIZANIDINE
  6. GLIPIZIDE. [Concomitant]
     Active Substance: GLIPIZIDE
  7. BACTRIM [Suspect]
     Active Substance: SULFAMETHOXAZOLE\TRIMETHOPRIM
     Indication: ABSCESS
     Route: 048
  8. INDERAL LA [Concomitant]
     Active Substance: PROPRANOLOL HYDROCHLORIDE

REACTIONS (13)
  - Insomnia [None]
  - Malaise [None]
  - Dyspnoea [None]
  - Metabolic acidosis [None]
  - Cough [None]
  - Fatigue [None]
  - Headache [None]
  - Asthenia [None]
  - Decreased appetite [None]
  - White blood cell count increased [None]
  - Renal failure [None]
  - Urine output decreased [None]
  - Sepsis [None]

NARRATIVE: CASE EVENT DATE: 20170122
